FAERS Safety Report 4913001-1 (Version None)
Quarter: 2006Q1

REPORT INFORMATION
  Report Type: 
  Country: None (occurrence: None)
  Receive Date: 20060210
  Receipt Date: 20060130
  Transmission Date: 20060701
  Serious: Yes (Other)
  Sender: FDA-Public Use
  Company Number: 2005052158

PATIENT
  Age: 62 Year
  Sex: Female
  Weight: 68.0396 kg

DRUGS (3)
  1. XALATAN [Suspect]
     Indication: GLAUCOMA
     Dosage: 3 MCG (1.5 MCG, 1 DROP EACH EYE), OPHTHALMIC
     Route: 047
  2. FOSAMAX [Concomitant]
  3. PREMPRO [Concomitant]

REACTIONS (4)
  - INTRAOCULAR PRESSURE INCREASED [None]
  - POOR QUALITY DRUG ADMINISTERED [None]
  - RETINAL DISORDER [None]
  - VITREOUS DETACHMENT [None]
